FAERS Safety Report 20444613 (Version 2)
Quarter: 2022Q2

REPORT INFORMATION
  Report Type: Report from Study
  Country: US (occurrence: US)
  Receive Date: 20220208
  Receipt Date: 20220429
  Transmission Date: 20220721
  Serious: Yes (Hospitalization, Other)
  Sender: FDA-Public Use
  Company Number: US-ACADIA PHARMACEUTICALS INC.-ACA-2022-PIM-000189

PATIENT
  Age: 71 Year
  Sex: Male

DRUGS (1)
  1. NUPLAZID [Suspect]
     Active Substance: PIMAVANSERIN TARTRATE
     Indication: Parkinson^s disease
     Dosage: 34 MILLIGRAM, QD
     Route: 048
     Dates: start: 202105

REACTIONS (9)
  - Suicidal ideation [Recovered/Resolved]
  - Paranoia [Unknown]
  - Delusion [Unknown]
  - Dementia with Lewy bodies [Unknown]
  - Dementia with Lewy bodies [Unknown]
  - Abnormal behaviour [Unknown]
  - Therapeutic product effect decreased [Unknown]
  - Hallucination [Unknown]
  - Hallucination, visual [Unknown]

NARRATIVE: CASE EVENT DATE: 20220206
